FAERS Safety Report 11787206 (Version 1)
Quarter: 2015Q4

REPORT INFORMATION
  Report Type: Spontaneous
  Country: FR (occurrence: FR)
  Receive Date: 20151130
  Receipt Date: 20151130
  Transmission Date: 20160305
  Serious: Yes (Hospitalization)
  Sender: FDA-Public Use
  Company Number: FR-ABBVIE-15P-056-1510342-00

PATIENT
  Age: 27 Year
  Sex: Male

DRUGS (5)
  1. DEPAKOTE [Suspect]
     Active Substance: DIVALPROEX SODIUM
     Indication: BIPOLAR I DISORDER
     Dosage: GASTRO-RESISTANT TABLET
     Route: 048
     Dates: start: 2011, end: 20151102
  2. RISPERDAL [Suspect]
     Active Substance: RISPERIDONE
     Indication: BIPOLAR I DISORDER
     Dosage: EXTENDED RELEASE
     Route: 048
     Dates: start: 2011, end: 20151102
  3. NOZINAN [Suspect]
     Active Substance: LEVOMEPROMAZINE
     Indication: MANIA
     Route: 048
     Dates: start: 20151102, end: 20151102
  4. LOXAPAC [Suspect]
     Active Substance: LOXAPINE SUCCINATE
     Indication: MANIA
     Dosage: EXTENDED RELEASE
     Route: 048
     Dates: start: 20151102, end: 20151102
  5. ABILIFY [Suspect]
     Active Substance: ARIPIPRAZOLE
     Indication: MANIA
     Route: 048
     Dates: start: 20151102, end: 20151102

REACTIONS (2)
  - Hyperthermia [Recovered/Resolved]
  - Extrapyramidal disorder [Recovered/Resolved]

NARRATIVE: CASE EVENT DATE: 20151102
